FAERS Safety Report 7286158-8 (Version None)
Quarter: 2011Q1

REPORT INFORMATION
  Report Type: 
  Country: None (occurrence: None)
  Receive Date: 20110210
  Receipt Date: 20110201
  Transmission Date: 20110831
  Serious: Yes (Other)
  Sender: FDA-Public Use
  Company Number: US-ASTRAZENECA-2011SE05785

PATIENT
  Sex: Female

DRUGS (1)
  1. PRILOSEC OTC [Suspect]
     Route: 048

REACTIONS (4)
  - ABDOMINAL PAIN [None]
  - DRUG DOSE OMISSION [None]
  - DRUG DEPENDENCE [None]
  - CHEST PAIN [None]
